FAERS Safety Report 15662569 (Version 1)
Quarter: 2018Q4

REPORT INFORMATION
  Report Type: Spontaneous
  Country: US (occurrence: US)
  Receive Date: 20181127
  Receipt Date: 20181127
  Transmission Date: 20190205
  Serious: Yes (Other)
  Sender: FDA-Public Use
  Company Number: US-TEVA-2018-US-980569

PATIENT
  Age: 51 Year
  Sex: Female

DRUGS (2)
  1. CISPLATIN. [Suspect]
     Active Substance: CISPLATIN
     Indication: LUNG ADENOCARCINOMA STAGE III
     Dosage: ON DAYS 1, 8, 29 AND 36; TWO CYCLES
     Route: 065
  2. ETOPOSIDE. [Suspect]
     Active Substance: ETOPOSIDE
     Indication: LUNG ADENOCARCINOMA STAGE III
     Dosage: 50 MG/M2 DAILY; ON DAYS 1 TO 5 AND DAYS 29 TO 33; TWO CYCLES
     Route: 065

REACTIONS (1)
  - Superior vena cava syndrome [Recovered/Resolved]
